FAERS Safety Report 4599952-9 (Version None)
Quarter: 2005Q1

REPORT INFORMATION
  Report Type: 
  Country: None (occurrence: None)
  Receive Date: 20050307
  Receipt Date: 20041215
  Transmission Date: 20050727
  Serious: Yes (Life-Threatening, Hospitalization, Disabling)
  Sender: FDA-Public Use
  Company Number: US-MERCK-0412USA01945

PATIENT
  Age: 51 Year
  Sex: Male

DRUGS (9)
  1. VIOXX [Suspect]
     Indication: BACK PAIN
     Route: 048
     Dates: start: 20001201, end: 20020701
  2. VIOXX [Suspect]
     Route: 048
     Dates: start: 20020701, end: 20021114
  3. VIOXX [Suspect]
     Route: 048
     Dates: start: 20021115
  4. VIOXX [Suspect]
     Indication: NECK PAIN
     Route: 048
     Dates: start: 20001201, end: 20020701
  5. VIOXX [Suspect]
     Route: 048
     Dates: start: 20020701, end: 20021114
  6. VIOXX [Suspect]
     Route: 048
     Dates: start: 20021115
  7. DIAZEPAM [Concomitant]
     Indication: ANXIETY
     Route: 065
  8. TELENZEPINE [Concomitant]
     Route: 065
  9. CITALOPRAM [Concomitant]
     Indication: ANTIDEPRESSANT THERAPY
     Route: 065

REACTIONS (5)
  - CONJUNCTIVITIS INFECTIVE [None]
  - DEPRESSION [None]
  - MYOCARDIAL INFARCTION [None]
  - RENAL FAILURE CHRONIC [None]
  - SINUSITIS [None]
